FAERS Safety Report 9004877 (Version 2)
Quarter: 2013Q1

REPORT INFORMATION
  Report Type: Spontaneous
  Country: US (occurrence: US)
  Receive Date: 20130109
  Receipt Date: 20130301
  Transmission Date: 20140127
  Serious: No
  Sender: FDA-Public Use
  Company Number: US-PFIZER INC-2013007459

PATIENT
  Age: 61 Year
  Sex: Female
  Weight: 58 kg

DRUGS (4)
  1. ADVIL COLD AND SINUS [Suspect]
     Indication: NASOPHARYNGITIS
     Dosage: 200 MG, UNK
  2. ADVIL COLD AND SINUS [Suspect]
     Indication: SINUSITIS
  3. SINGULAIR [Concomitant]
     Indication: SINUSITIS
     Dosage: 10 MG, DAILY
  4. SINGULAIR [Concomitant]
     Indication: HYPERSENSITIVITY

REACTIONS (2)
  - Drug ineffective [Unknown]
  - Product packaging issue [Unknown]
